FAERS Safety Report 14496473 (Version 1)
Quarter: 2018Q1

REPORT INFORMATION
  Report Type: Spontaneous
  Country: CA (occurrence: CA)
  Receive Date: 20180207
  Receipt Date: 20180207
  Transmission Date: 20180509
  Serious: Yes (Other)
  Sender: FDA-Public Use
  Company Number: CA-ORION CORPORATION ORION PHARMA-TREX2018-0350

PATIENT
  Age: 26 Year
  Sex: Male

DRUGS (5)
  1. FOLIC ACID. [Suspect]
     Active Substance: FOLIC ACID
     Route: 065
  2. METHOTREXATE (TRADE NAME UNKNOWN) [Suspect]
     Active Substance: METHOTREXATE
     Route: 065
  3. PREDNISONE. [Concomitant]
     Active Substance: PREDNISONE
     Route: 065
  4. COLESTID [Suspect]
     Active Substance: COLESTIPOL HYDROCHLORIDE
     Route: 065
  5. CALCIUM/VITAMIN D [Suspect]
     Active Substance: CALCIUM\VITAMIN D
     Route: 065

REACTIONS (1)
  - Crohn^s disease [Unknown]
